FAERS Safety Report 7735772-1 (Version None)
Quarter: 2011Q3

REPORT INFORMATION
  Report Type: 
  Country: None (occurrence: None)
  Receive Date: 20110908
  Receipt Date: 20110830
  Transmission Date: 20111222
  Serious: No
  Sender: FDA-Public Use
  Company Number: US-BIOGENIDEC-2010BI006778

PATIENT
  Age: 54 Year
  Sex: Female

DRUGS (1)
  1. TYSABRI [Suspect]
     Indication: MULTIPLE SCLEROSIS
     Route: 042
     Dates: start: 20080730

REACTIONS (9)
  - ARTHRALGIA [None]
  - FATIGUE [None]
  - EAR INFECTION [None]
  - DECREASED IMMUNE RESPONSIVENESS [None]
  - FEELING COLD [None]
  - MULTIPLE SCLEROSIS [None]
  - HEADACHE [None]
  - MYALGIA [None]
  - UPPER-AIRWAY COUGH SYNDROME [None]
